FAERS Safety Report 6788914-9 (Version None)
Quarter: 2010Q2

REPORT INFORMATION
  Report Type: 
  Country: None (occurrence: None)
  Receive Date: 20100621
  Receipt Date: 20100412
  Transmission Date: 20101027
  Serious: Yes (Hospitalization)
  Sender: FDA-Public Use
  Company Number: UTC-001018

PATIENT
  Age: 60 Year
  Sex: Female
  Weight: 106.4 kg

DRUGS (11)
  1. TYVASO [Suspect]
     Indication: PULMONARY HYPERTENSION
     Dosage: 72 MCG (18 MCG, 4 IN 1 D) INHALATION
     Route: 055
     Dates: start: 20100315
  2. TRACLEER [Concomitant]
  3. REXEXA [Concomitant]
  4. COUMADIN [Concomitant]
  5. REVATIO [Concomitant]
  6. SOTALOL HCL [Concomitant]
  7. ADVAIR DISKUS 100/50 [Concomitant]
  8. METFORMIN HCL [Concomitant]
  9. TOPROL-XL [Concomitant]
  10. SPIRIVA [Concomitant]
  11. LISINOPRIL [Concomitant]

REACTIONS (2)
  - CARDIAC FAILURE CONGESTIVE [None]
  - PULMONARY OEDEMA [None]
